FAERS Safety Report 7202739-1 (Version None)
Quarter: 2010Q4

REPORT INFORMATION
  Report Type: 
  Country: None (occurrence: None)
  Receive Date: 20101229
  Receipt Date: 20101229
  Transmission Date: 20110411
  Serious: Yes (Other)
  Sender: FDA-Public Use
  Company Number: US-PFIZER INC-2010127341

PATIENT
  Sex: Female

DRUGS (1)
  1. XALATAN [Suspect]
     Indication: GLAUCOMA
     Dosage: ONE DROP INTO BOTH EYES, ONCE DAILY, AT NIGHT
     Dates: start: 20100929, end: 20101029

REACTIONS (2)
  - DRUG INTOLERANCE [None]
  - HYPERTENSION [None]
